FAERS Safety Report 6666606-4 (Version None)
Quarter: 2010Q2

REPORT INFORMATION
  Report Type: 
  Country: None (occurrence: None)
  Receive Date: 20100404
  Receipt Date: 20100326
  Transmission Date: 20101027
  Serious: Yes (Other)
  Sender: FDA-Public Use
  Company Number: HU-BRISTOL-MYERS SQUIBB COMPANY-15039175

PATIENT
  Age: 20 Year
  Sex: Female

DRUGS (2)
  1. ABATACEPT [Suspect]
     Indication: RHEUMATOID ARTHRITIS
     Dosage: INTERRUPTED ON 01MAR2010
     Route: 058
     Dates: start: 20081111
  2. METHOTREXATE [Suspect]
     Indication: RHEUMATOID ARTHRITIS

REACTIONS (5)
  - ABDOMINAL DISCOMFORT [None]
  - GASTROINTESTINAL PAIN [None]
  - PYREXIA [None]
  - TONSILLAR INFLAMMATION [None]
  - VIRAL INFECTION [None]
